FAERS Safety Report 23780871 (Version 2)
Quarter: 2024Q2

REPORT INFORMATION
  Report Type: Spontaneous
  Country: NL (occurrence: NL)
  Receive Date: 20240425
  Receipt Date: 20240516
  Transmission Date: 20240716
  Serious: Yes (Death, Other)
  Sender: FDA-Public Use
  Company Number: NL-UCBSA-2024019164

PATIENT
  Sex: Female
  Weight: 49 kg

DRUGS (1)
  1. ROMOSOZUMAB [Suspect]
     Active Substance: ROMOSOZUMAB
     Indication: Product used for unknown indication
     Dosage: UNK
     Route: 065
     Dates: start: 202205, end: 202308

REACTIONS (6)
  - Metastases to liver [Unknown]
  - Lung adenocarcinoma [Fatal]
  - Blood bilirubin increased [Unknown]
  - Biliary obstruction [Unknown]
  - Metastases to pancreas [Unknown]
  - Metastases to adrenals [Unknown]
